FAERS Safety Report 9257846 (Version 1)
Quarter: 2013Q2

REPORT INFORMATION
  Report Type: Spontaneous
  Country: US (occurrence: US)
  Receive Date: 20130426
  Receipt Date: 20130426
  Transmission Date: 20140414
  Serious: No
  Sender: FDA-Public Use
  Company Number: US-GLAXOSMITHKLINE-A1008430A

PATIENT
  Age: 54 Year
  Sex: Male
  Weight: 111.4 kg

DRUGS (9)
  1. ZOFRAN [Suspect]
  2. PRAVASTATIN [Concomitant]
  3. AMLODIPINE [Concomitant]
  4. ULORIC [Concomitant]
  5. LASIX [Concomitant]
  6. VIT D [Concomitant]
  7. VITAMIN B12 [Concomitant]
  8. SUTENT [Concomitant]
     Dates: start: 20121122
  9. NALTREXONE [Concomitant]

REACTIONS (2)
  - Headache [Unknown]
  - Treatment noncompliance [Unknown]
